FAERS Safety Report 24237664 (Version 2)
Quarter: 2024Q3

REPORT INFORMATION
  Report Type: Spontaneous
  Country: US (occurrence: US)
  Receive Date: 20240822
  Receipt Date: 20240918
  Transmission Date: 20241016
  Serious: No
  Sender: ROCHE
  Company Number: US-ROCHE-10000063380

PATIENT
  Sex: Female
  Weight: 82 kg

DRUGS (31)
  1. OCREVUS [Suspect]
     Active Substance: OCRELIZUMAB
     Indication: Multiple sclerosis
     Route: 042
     Dates: start: 202210
  2. OCREVUS [Suspect]
     Active Substance: OCRELIZUMAB
     Dosage: SUBSEQUENT INFUSION, 28/APR/2024.?OCRELIZUMAB WAS DISCONTINUED ON 23/MAY/2024
     Route: 065
     Dates: start: 20240423
  3. ALBUTEROL SULFATE [Concomitant]
     Active Substance: ALBUTEROL SULFATE
     Dates: start: 20210309
  4. BACLOFEN [Concomitant]
     Active Substance: BACLOFEN
     Dates: start: 20181218
  5. BREZTRI [Concomitant]
     Active Substance: BUDESONIDE\FORMOTEROL\GLYCOPYRROLATE
     Dates: start: 20231128
  6. BUDESONIDE [Concomitant]
     Active Substance: BUDESONIDE
     Dates: start: 20240426
  7. BUPROPION HYDROCHLORIDE [Concomitant]
     Active Substance: BUPROPION HYDROCHLORIDE
     Dates: start: 20190402
  8. DULOXETINE [Concomitant]
     Active Substance: DULOXETINE
     Dates: start: 20220706
  9. FLUCONAZOLE [Concomitant]
     Active Substance: FLUCONAZOLE
     Dates: start: 20220906
  10. GABAPENTIN [Concomitant]
     Active Substance: GABAPENTIN
     Dates: start: 20220822
  11. ACETAMINOPHEN [Concomitant]
     Active Substance: ACETAMINOPHEN
     Dates: start: 20221013
  12. HYDROXYZINE [Concomitant]
     Active Substance: HYDROXYZINE HYDROCHLORIDE
     Dates: start: 20210621
  13. IPRATROPIUM [Concomitant]
     Active Substance: IPRATROPIUM
     Dates: start: 20240426
  14. KESIMPTA [Concomitant]
     Active Substance: OFATUMUMAB
     Dates: start: 20240719
  15. LAMOTRIGINE [Concomitant]
     Active Substance: LAMOTRIGINE
     Dates: start: 20221004
  16. LISDEXAMFETAMINE [Concomitant]
     Active Substance: LISDEXAMFETAMINE
     Dates: start: 20240719
  17. LOSARTAN [Concomitant]
     Active Substance: LOSARTAN\LOSARTAN POTASSIUM
     Dates: start: 20240503
  18. MONTELUKAST [Concomitant]
     Active Substance: MONTELUKAST SODIUM
     Dates: start: 20210727
  19. MUPIROCIN [Concomitant]
     Active Substance: MUPIROCIN
     Dates: start: 20240729
  20. NEBIVOLOL [Concomitant]
     Active Substance: NEBIVOLOL
     Dates: start: 20220118
  21. OMEPRAZOLE [Concomitant]
     Active Substance: OMEPRAZOLE
     Dates: start: 20230111
  22. ONDANSETRON [Concomitant]
     Active Substance: ONDANSETRON
     Dates: start: 20180924
  23. OXYCODONE [Concomitant]
     Active Substance: OXYCODONE
  24. PRIMIDONE [Concomitant]
     Active Substance: PRIMIDONE
     Dates: start: 20211012
  25. QULIPTA [Concomitant]
     Active Substance: ATOGEPANT
     Dates: start: 20220601
  26. SPIRIVA RESPIMAT [Concomitant]
     Active Substance: TIOTROPIUM BROMIDE
     Dates: start: 20210527
  27. SUMATRIPTAN [Concomitant]
     Active Substance: SUMATRIPTAN\SUMATRIPTAN SUCCINATE
     Dates: start: 20240708
  28. SYMBICORT [Concomitant]
     Active Substance: BUDESONIDE\FORMOTEROL FUMARATE DIHYDRATE
     Dates: start: 20220208
  29. TEMAZEPAM [Concomitant]
     Active Substance: TEMAZEPAM
     Dates: start: 20230511
  30. TROSPIUM [Concomitant]
     Active Substance: TROSPIUM
     Dates: start: 20230810
  31. VALACYCLOVIR [Concomitant]
     Active Substance: VALACYCLOVIR HYDROCHLORIDE
     Dates: start: 20240319

REACTIONS (2)
  - Multiple sclerosis [Unknown]
  - Blood immunoglobulin G decreased [Unknown]
